FAERS Safety Report 21910987 (Version 2)
Quarter: 2023Q1

REPORT INFORMATION
  Report Type: Spontaneous
  Country: DE (occurrence: DE)
  Receive Date: 20230125
  Receipt Date: 20230330
  Transmission Date: 20230418
  Serious: Yes (Disabling, Other)
  Sender: FDA-Public Use
  Company Number: DE-BoehringerIngelheim-2023-BI-214632

PATIENT
  Age: 72 Year
  Sex: Female
  Weight: 80 kg

DRUGS (1)
  1. JARDIANCE [Suspect]
     Active Substance: EMPAGLIFLOZIN
     Indication: Type 2 diabetes mellitus
     Route: 048
     Dates: start: 202106, end: 202107

REACTIONS (7)
  - Diarrhoea [Not Recovered/Not Resolved]
  - Thirst [Recovered/Resolved]
  - Pollakiuria [Recovered/Resolved]
  - Stress fracture [Recovered/Resolved]
  - Vulvovaginal mycotic infection [Recovered/Resolved]
  - Weight decreased [Unknown]
  - Stress fracture [Unknown]

NARRATIVE: CASE EVENT DATE: 20210601
